FAERS Safety Report 9857935 (Version 1)
Quarter: 2014Q1

REPORT INFORMATION
  Report Type: Spontaneous
  Country: US (occurrence: US)
  Receive Date: 20140131
  Receipt Date: 20140131
  Transmission Date: 20141002
  Serious: No
  Sender: FDA-Public Use
  Company Number: US-PFIZER INC-2014027539

PATIENT
  Age: 84 Year
  Sex: Female

DRUGS (7)
  1. LIPITOR [Suspect]
     Dosage: 10 MG, DAILY
  2. GABAPENTIN [Suspect]
     Dosage: UNK
  3. PRAVASTATIN [Suspect]
     Dosage: UNK
  4. CRESTOR [Suspect]
     Dosage: UNK
  5. PANTOPRAZOLE SODIUM [Concomitant]
     Dosage: 40 MG, DAILY (1 TAB DAILY)
  6. ASPIRIN [Concomitant]
     Dosage: 325 MG, DAILY AT NIGHT
  7. METOPROLOL TARTRATE [Concomitant]
     Dosage: 25 MG, 2X/DAY

REACTIONS (1)
  - Drug hypersensitivity [Unknown]
